FAERS Safety Report 5010571-2 (Version None)
Quarter: 2006Q2

REPORT INFORMATION
  Report Type: 
  Country: None (occurrence: None)
  Receive Date: 20060525
  Receipt Date: 20060418
  Transmission Date: 20061013
  Serious: Yes (Life-Threatening, Hospitalization)
  Sender: FDA-Public Use
  Company Number: US-GLAXOSMITHKLINE-A0602525A

PATIENT
  Sex: Male

DRUGS (1)
  1. EPZICOM [Suspect]
     Dosage: 1TAB PER DAY
     Dates: start: 20060301

REACTIONS (1)
  - DRUG HYPERSENSITIVITY [None]
